FAERS Safety Report 21655608 (Version 1)
Quarter: 2022Q4

REPORT INFORMATION
  Report Type: Spontaneous
  Country: ES (occurrence: ES)
  Receive Date: 20221129
  Receipt Date: 20221129
  Transmission Date: 20230113
  Serious: Yes (Other)
  Sender: FDA-Public Use
  Company Number: ES-CHEPLA-2022011096

PATIENT
  Age: 23 Year
  Sex: Male

DRUGS (18)
  1. CLONAZEPAM [Suspect]
     Active Substance: CLONAZEPAM
     Indication: New onset refractory status epilepticus
     Dosage: DAILY DOSE: 3 MILLIGRAM
  2. BRIVARACETAM [Suspect]
     Active Substance: BRIVARACETAM
     Indication: New onset refractory status epilepticus
     Dosage: DAILY DOSE: 400 MILLIGRAM
  3. BRIVARACETAM [Suspect]
     Active Substance: BRIVARACETAM
     Indication: New onset refractory status epilepticus
     Dosage: DAILY DOSE: 400 MILLIGRAM
  4. LACOSAMIDE [Suspect]
     Active Substance: LACOSAMIDE
     Indication: New onset refractory status epilepticus
     Dosage: DAILY DOSE: 500 MILLIGRAM
  5. PERAMPANEL [Suspect]
     Active Substance: PERAMPANEL
     Indication: New onset refractory status epilepticus
     Dosage: DAILY DOSE: 12 MILLIGRAM
  6. PERAMPANEL [Suspect]
     Active Substance: PERAMPANEL
     Indication: New onset refractory status epilepticus
     Dosage: DAILY DOSE: 20 MILLIGRAM
  7. PERAMPANEL [Suspect]
     Active Substance: PERAMPANEL
     Indication: New onset refractory status epilepticus
     Dosage: DAILY DOSE: 12 MILLIGRAM
  8. PHENYTOIN [Suspect]
     Active Substance: PHENYTOIN
     Indication: New onset refractory status epilepticus
     Dosage: DAILY DOSE: 800 MILLIGRAM
  9. ANAKINRA [Suspect]
     Active Substance: ANAKINRA
     Indication: New onset refractory status epilepticus
     Dosage: AT DAY 28?DAILY DOSE: 5 MILLIGRAM/KG
  10. ZONISAMIDE [Suspect]
     Active Substance: ZONISAMIDE
     Indication: New onset refractory status epilepticus
     Dosage: DAILY DOSE: 200
  11. ZONISAMIDE [Suspect]
     Active Substance: ZONISAMIDE
     Indication: New onset refractory status epilepticus
     Dosage: DAILY DOSE: 500 MILLIGRAM
  12. VALPROIC ACID [Suspect]
     Active Substance: VALPROIC ACID
     Indication: New onset refractory status epilepticus
     Dosage: DAILY DOSE: 1500 MILLIGRAM
  13. VALPROIC ACID [Suspect]
     Active Substance: VALPROIC ACID
     Indication: New onset refractory status epilepticus
     Dosage: DAILY DOSE: 3400 MILLIGRAM
  14. TOCILIZUMAB [Concomitant]
     Active Substance: TOCILIZUMAB
     Dosage: ADMINISTERED AT DAYS 14, 17, 20 AND 23, RESPECTIVELY?DAILY DOSE: 8 MILLIGRAM/KG
  15. METHYLPREDNISOLONE [Concomitant]
     Active Substance: METHYLPREDNISOLONE
     Dosage: ADMINISTERED AT DAYS 14, 17, 20 AND 23, RESPECTIVELY?DAILY DOSE: 1 GRAM
  16. PHENOBARBITAL [Concomitant]
     Active Substance: PHENOBARBITAL
     Indication: Sedation
     Dosage: DAILY DOSE: 800 MILLIGRAM
  17. IMMUNOGLOBULIN [Concomitant]
     Dosage: DAILY DOSE: 0.4 GRAM PER KILOGRAM
     Route: 042
  18. CANNABIDIOL [Concomitant]
     Active Substance: CANNABIDIOL
     Dosage: DAILY DOSE: 10 MILLIGRAM

REACTIONS (2)
  - Epilepsy [Unknown]
  - Drug ineffective [Unknown]
